FAERS Safety Report 24463234 (Version 1)
Quarter: 2024Q4

REPORT INFORMATION
  Report Type: Report from Study
  Country: US (occurrence: US)
  Receive Date: 20241018
  Receipt Date: 20241018
  Transmission Date: 20250115
  Serious: No
  Sender: ROCHE
  Company Number: US-ROCHE-2777864

PATIENT
  Age: 59 Year
  Sex: Male
  Weight: 199.58 kg

DRUGS (13)
  1. XOLAIR [Suspect]
     Active Substance: OMALIZUMAB
     Indication: Idiopathic urticaria
     Dosage: 300 MG EVERY 4 WEEKS, 150MG PFS
     Route: 058
     Dates: start: 20180306, end: 20210413
  2. XOLAIR [Suspect]
     Active Substance: OMALIZUMAB
     Dosage: 300 MG/DOSE EVERY 3 WEEKS.
     Route: 058
     Dates: start: 202103
  3. FLOMAX [Concomitant]
     Active Substance: TAMSULOSIN HYDROCHLORIDE
  4. VITAMIN D3 [Concomitant]
     Active Substance: CHOLECALCIFEROL
  5. LIPITOR [Concomitant]
     Active Substance: ATORVASTATIN CALCIUM
  6. FLONASE [Concomitant]
     Active Substance: FLUTICASONE PROPIONATE
  7. NEXIUM [Concomitant]
     Active Substance: ESOMEPRAZOLE MAGNESIUM
  8. PEPCID [Concomitant]
     Active Substance: FAMOTIDINE
  9. PREDNISONE [Concomitant]
     Active Substance: PREDNISONE
     Indication: Angioedema
  10. PREDNISONE [Concomitant]
     Active Substance: PREDNISONE
     Indication: Back pain
  11. METOPROLOL [Concomitant]
     Active Substance: METOPROLOL
  12. AMLODIPINE [Concomitant]
     Active Substance: AMLODIPINE BESYLATE
  13. LORATADINE [Concomitant]
     Active Substance: LORATADINE

REACTIONS (2)
  - No adverse event [Unknown]
  - Off label use [Unknown]
